FAERS Safety Report 15695392 (Version 1)
Quarter: 2018Q4

REPORT INFORMATION
  Report Type: Spontaneous
  Country: HU (occurrence: HU)
  Receive Date: 20181206
  Receipt Date: 20181206
  Transmission Date: 20190205
  Serious: Yes (Hospitalization, Other)
  Sender: FDA-Public Use
  Company Number: HU-ASTRAZENECA-2018SF56043

PATIENT
  Age: 78 Year
  Sex: Male
  Weight: 48.3 kg

DRUGS (8)
  1. CHINOTAL [Concomitant]
     Active Substance: PENTOXIFYLLINE
     Indication: RAYNAUD^S PHENOMENON
     Dosage: 400 MG, OD
     Route: 048
     Dates: start: 20151221
  2. ALPROSTADIL. [Suspect]
     Active Substance: ALPROSTADIL
     Indication: THROMBOANGIITIS OBLITERANS
     Dosage: 20UG/INHAL
     Route: 042
     Dates: start: 20180131, end: 20180204
  3. METAMIZOL [Suspect]
     Active Substance: METAMIZOLE SODIUM
     Indication: PAIN
     Route: 048
     Dates: start: 20160509
  4. DETRALEX [Concomitant]
     Active Substance: DIOSMIN\HESPERIDIN
     Dosage: 500 MG, BID
     Route: 048
     Dates: start: 20160509
  5. XETER [Suspect]
     Active Substance: ROSUVASTATIN CALCIUM
     Indication: HYPERCHOLESTEROLAEMIA
     Route: 048
  6. CALCIUM [Concomitant]
     Active Substance: CALCIUM
     Indication: OSTEOPOROSIS
     Dosage: UNK
  7. SEDRON [Concomitant]
     Indication: RAYNAUD^S PHENOMENON
     Dosage: 400 MG, OD
     Route: 048
     Dates: start: 20151221
  8. BOSENTAN. [Suspect]
     Active Substance: BOSENTAN
     Indication: SCLERODERMA ASSOCIATED DIGITAL ULCER
     Route: 048
     Dates: start: 20160712

REACTIONS (5)
  - Gangrene [Recovering/Resolving]
  - Hepatic enzyme increased [Recovered/Resolved]
  - Treatment noncompliance [Unknown]
  - Weight decreased [Unknown]
  - Fatigue [Unknown]

NARRATIVE: CASE EVENT DATE: 201712
